FAERS Safety Report 9923999 (Version 3)
Quarter: 2014Q1

REPORT INFORMATION
  Report Type: Spontaneous
  Country: CN (occurrence: CN)
  Receive Date: 20140225
  Receipt Date: 20140328
  Transmission Date: 20141002
  Serious: Yes (Other)
  Sender: FDA-Public Use
  Company Number: CN-ABBVIE-14P-035-1205859-00

PATIENT
  Age: 37 Year
  Sex: Male

DRUGS (4)
  1. DEPAKINE CHRONO [Suspect]
     Indication: EPILEPSY
     Dosage: EXTENDED RELEASE
     Route: 048
     Dates: start: 201310
  2. DEPAKINE CHRONO [Suspect]
     Dosage: EXTENDED RELEASE
     Route: 048
  3. DEPAKINE CHRONO [Suspect]
     Dosage: EXTENDED RELEASE
     Route: 048
     Dates: end: 201402
  4. CITICOLINE [Concomitant]
     Indication: PRODUCT USED FOR UNKNOWN INDICATION
     Dates: start: 201310, end: 201401

REACTIONS (3)
  - Hypoaesthesia [Recovering/Resolving]
  - Convulsion [Recovered/Resolved]
  - Muscular weakness [Recovered/Resolved]
